FAERS Safety Report 10388786 (Version 1)
Quarter: 2014Q1

REPORT INFORMATION
  Report Type: Spontaneous
  Country: US (occurrence: None)
  Receive Date: 20140306
  Receipt Date: 20140306
  Transmission Date: 20141002
  Serious: Yes (Hospitalization)
  Sender: FDA-Public Use
  Company Number: 163-21880-13123469

PATIENT
  Age: 75 Year
  Sex: Female

DRUGS (7)
  1. REVLIMID (LENALIDOMIDE) (25 MILLIGRAM, CAPSULES) [Suspect]
     Indication: PLASMA CELL MYELOMA
     Route: 048
     Dates: start: 20131101
  2. LOSARTAN [Concomitant]
  3. SPIRONOLACTONE [Concomitant]
  4. BUMETADINE (TABLETS) [Concomitant]
  5. ALLOPURINOL [Concomitant]
  6. FOLIC ACID [Concomitant]
  7. SPIRIVA (TIOTROPIUM BROMIDE) [Concomitant]

REACTIONS (4)
  - Diarrhoea [None]
  - Blood potassium decreased [None]
  - Dysphonia [None]
  - Blister [None]
